FAERS Safety Report 24629561 (Version 2)
Quarter: 2024Q4

REPORT INFORMATION
  Report Type: Report from Study
  Country: US (occurrence: US)
  Receive Date: 20241118
  Receipt Date: 20241121
  Transmission Date: 20250115
  Serious: Yes (Other)
  Sender: TAKEDA
  Company Number: US-TAKEDA-2024TUS075767

PATIENT
  Age: 68 Year
  Sex: Female

DRUGS (4)
  1. FRUQUINTINIB [Suspect]
     Active Substance: FRUQUINTINIB
     Indication: Colon cancer
     Dosage: 5 MILLIGRAM
  2. FRUQUINTINIB [Suspect]
     Active Substance: FRUQUINTINIB
     Dosage: 5 MILLIGRAM
  3. FRUQUINTINIB [Suspect]
     Active Substance: FRUQUINTINIB
     Dosage: 4 MILLIGRAM
  4. FRUQUINTINIB [Suspect]
     Active Substance: FRUQUINTINIB
     Dosage: 5 MILLIGRAM

REACTIONS (9)
  - Haematochezia [Recovered/Resolved]
  - Full blood count decreased [Not Recovered/Not Resolved]
  - White blood cell count decreased [Unknown]
  - Blood pressure increased [Unknown]
  - Platelet count decreased [Unknown]
  - Rash macular [Not Recovered/Not Resolved]
  - Hordeolum [Unknown]
  - Ear infection [Unknown]
  - Pruritus [Unknown]

NARRATIVE: CASE EVENT DATE: 20240724
